FAERS Safety Report 17946078 (Version 1)
Quarter: 2020Q2

REPORT INFORMATION
  Report Type: Spontaneous
  Country: TH (occurrence: TH)
  Receive Date: 20200626
  Receipt Date: 20200626
  Transmission Date: 20200714
  Serious: Yes (Other)
  Sender: FDA-Public Use
  Company Number: TH-DSJP-DSJ-2020-117515

PATIENT

DRUGS (2)
  1. EDOXABAN [Suspect]
     Active Substance: EDOXABAN TOSYLATE
     Indication: PROPHYLAXIS
     Dosage: 60 MG, QD
     Route: 048
  2. EDOXABAN [Suspect]
     Active Substance: EDOXABAN TOSYLATE
     Indication: ATRIAL FIBRILLATION

REACTIONS (2)
  - Vitamin C deficiency [Unknown]
  - Glomerular filtration rate decreased [Unknown]
